FAERS Safety Report 24945457 (Version 1)
Quarter: 2025Q1

REPORT INFORMATION
  Report Type: Other
  Country: JP (occurrence: JP)
  Receive Date: 20250209
  Receipt Date: 20250209
  Transmission Date: 20250409
  Serious: Yes (Hospitalization)
  Sender: DEXCEL LTD.
  Company Number: JP-DEXPHARM-2025-0827

PATIENT
  Age: 46 Year
  Sex: Female
  Weight: 119 kg

DRUGS (1)
  1. DEXAMETHASONE [Suspect]
     Active Substance: DEXAMETHASONE
     Indication: Respiratory disorder
     Dosage: LONG-TERM ORAL STEROID THERAPY (DEXAMETHASONE 2 MG DAILY)

REACTIONS (2)
  - Steroid diabetes [Recovered/Resolved]
  - Bacterial infection [Recovered/Resolved]
